FAERS Safety Report 14712697 (Version 1)
Quarter: 2018Q2

REPORT INFORMATION
  Report Type: Spontaneous
  Country: FR (occurrence: FR)
  Receive Date: 20180404
  Receipt Date: 20180404
  Transmission Date: 20180711
  Serious: Yes (Other)
  Sender: FDA-Public Use
  Company Number: FR-AUROBINDO-AUR-APL-2018-018048

PATIENT
  Sex: Male
  Weight: 53 kg

DRUGS (6)
  1. AUGMENTIN [Suspect]
     Active Substance: AMOXICILLIN\CLAVULANATE POTASSIUM
     Indication: TONSILLITIS
     Dosage: 3 GRAM, ONCE A DAY
     Route: 048
     Dates: start: 20171115, end: 201712
  2. MINIPRESS [Concomitant]
     Active Substance: PRAZOSIN HYDROCHLORIDE
     Indication: NIGHTMARE
     Dosage: 5 MILLIGRAM, ONCE A DAY
     Route: 048
     Dates: start: 20171121, end: 20171210
  3. JOSACINE                           /00273601/ [Suspect]
     Active Substance: JOSAMYCIN
     Indication: TONSILLITIS
     Dosage: 2 GRAM, ONCE A DAY
     Route: 048
     Dates: start: 20171208, end: 20171210
  4. SKUDEXUM [Suspect]
     Active Substance: DEXKETOPROFEN\TRAMADOL
     Indication: HEADACHE
     Dosage: SI BESOIN
     Route: 048
     Dates: start: 20171108, end: 20171210
  5. PARACETAMOL [Suspect]
     Active Substance: ACETAMINOPHEN
     Indication: HEADACHE
     Dosage: 6 GRAM, ONCE A DAY
     Route: 048
     Dates: start: 201711, end: 20171210
  6. TEMESTA                            /00273201/ [Concomitant]
     Active Substance: LORAZEPAM
     Indication: ANXIETY
     Dosage: 1 MILLIGRAM, ONCE A DAY
     Route: 048

REACTIONS (1)
  - Hepatocellular injury [Recovered/Resolved]

NARRATIVE: CASE EVENT DATE: 20171210
